FAERS Safety Report 16421360 (Version 1)
Quarter: 2019Q2

REPORT INFORMATION
  Report Type: Spontaneous
  Country: US (occurrence: US)
  Receive Date: 20190612
  Receipt Date: 20190612
  Transmission Date: 20190711
  Serious: Yes (Death, Other)
  Sender: FDA-Public Use
  Company Number: US-FRESENIUS KABI-FK201906492

PATIENT
  Age: 44 Year
  Sex: Female

DRUGS (1)
  1. SODIUM CHLORIDE (MANUFACTURER UNKNOWN) [Suspect]
     Active Substance: SODIUM CHLORIDE
     Indication: PRODUCT USED FOR UNKNOWN INDICATION

REACTIONS (6)
  - Exposure via contaminated device [Fatal]
  - Pericarditis [Unknown]
  - Expired product administered [Unknown]
  - Septic shock [Fatal]
  - Staphylococcal sepsis [Fatal]
  - Suspected product contamination [Fatal]
